FAERS Safety Report 25159227 (Version 1)
Quarter: 2025Q2

REPORT INFORMATION
  Report Type: Spontaneous
  Country: GB (occurrence: GB)
  Receive Date: 20250404
  Receipt Date: 20250404
  Transmission Date: 20250717
  Serious: No
  Sender: ALKEM
  Company Number: None

PATIENT
  Age: 33 Year
  Sex: Female

DRUGS (2)
  1. ARIPIPRAZOLE [Suspect]
     Active Substance: ARIPIPRAZOLE
     Indication: Product used for unknown indication
     Dosage: 2 DOSAGE FORM, QD (TAKING 2 ARIPRIPRAZOLE TABLETS DAILY)
     Route: 065
     Dates: start: 20241015
  2. CLONAZEPAM [Suspect]
     Active Substance: CLONAZEPAM
     Indication: Product used for unknown indication
     Route: 065

REACTIONS (3)
  - Reaction to preservatives [Not Recovered/Not Resolved]
  - Malaise [Unknown]
  - Insomnia [Unknown]

NARRATIVE: CASE EVENT DATE: 20241016
